FAERS Safety Report 8300036-4 (Version None)
Quarter: 2012Q2

REPORT INFORMATION
  Report Type: 
  Country: None (occurrence: None)
  Receive Date: 20120417
  Receipt Date: 20120402
  Transmission Date: 20120825
  Serious: Yes (Hospitalization)
  Sender: FDA-Public Use
  Company Number: 2012MA001592

PATIENT
  Age: 27 Year
  Sex: Female

DRUGS (9)
  1. ACYCLOVIR [Suspect]
     Indication: MENINGITIS
  2. CEFTRIAXONE [Suspect]
     Indication: INFECTION
     Dosage: 4 GM; QD; IV
     Route: 042
  3. TRAMADOL HCL [Concomitant]
  4. ACYCLOVIR [Suspect]
     Indication: MENINGITIS
  5. ACYCLOVIR [Suspect]
     Indication: MENINGITIS
     Dosage: 600 MG; TID; IV
     Route: 042
     Dates: start: 20120103, end: 20120105
  6. CODEINE [Concomitant]
  7. IBUPROFEN [Concomitant]
  8. ACETAMINOPHEN [Concomitant]
  9. ENOXAPARIN SODIUM [Concomitant]

REACTIONS (2)
  - SERUM FERRITIN INCREASED [None]
  - HEPATITIS TOXIC [None]
